FAERS Safety Report 12446799 (Version 1)
Quarter: 2016Q2

REPORT INFORMATION
  Report Type: Spontaneous
  Country: US (occurrence: None)
  Receive Date: 20160607
  Receipt Date: 20160607
  Transmission Date: 20160815
  Serious: No
  Sender: FDA-Public Use
  Company Number: None

PATIENT
  Age: 57 Year
  Sex: Male

DRUGS (2)
  1. DAKLINZA [Suspect]
     Active Substance: DACLATASVIR
     Indication: CHRONIC HEPATITIS C
     Route: 048
     Dates: start: 20160513, end: 20160603
  2. SOVALDI [Concomitant]
     Active Substance: SOFOSBUVIR

REACTIONS (3)
  - Dyskinesia [None]
  - Musculoskeletal stiffness [None]
  - Therapy cessation [None]

NARRATIVE: CASE EVENT DATE: 20160530
